FAERS Safety Report 7661594-6 (Version None)
Quarter: 2011Q3

REPORT INFORMATION
  Report Type: 
  Country: None (occurrence: None)
  Receive Date: 20110805
  Receipt Date: 20101024
  Transmission Date: 20111222
  Serious: No
  Sender: FDA-Public Use
  Company Number: US-ABBOTT-10P-163-0680943-00

PATIENT
  Sex: Male
  Weight: 88.076 kg

DRUGS (2)
  1. NIASPAN [Suspect]
     Indication: HYPERLIPIDAEMIA
     Dosage: AT NIGHT
     Dates: start: 20100807, end: 20101008
  2. NIASPAN [Suspect]
     Dosage: AT NIGHT
     Dates: start: 20101008

REACTIONS (2)
  - FLUSHING [None]
  - PRURITUS [None]
